FAERS Safety Report 22258655 (Version 1)
Quarter: 2023Q2

REPORT INFORMATION
  Report Type: Spontaneous
  Country: US (occurrence: None)
  Receive Date: 20230425
  Receipt Date: 20230425
  Transmission Date: 20230722
  Serious: No
  Sender: FDA-Public Use
  Company Number: None

PATIENT
  Sex: Female

DRUGS (1)
  1. HUMIRA [Suspect]
     Active Substance: ADALIMUMAB
     Dosage: OTHER FREQUENCY : OTHER;?
     Route: 058

REACTIONS (6)
  - Injection site reaction [None]
  - Diarrhoea [None]
  - Pruritus [None]
  - Dizziness [None]
  - Erythema [None]
  - Swelling [None]
